FAERS Safety Report 24575384 (Version 1)
Quarter: 2024Q4

REPORT INFORMATION
  Report Type: Report from Study
  Country: CN (occurrence: CN)
  Receive Date: 20241104
  Receipt Date: 20241104
  Transmission Date: 20250114
  Serious: Yes (Hospitalization, Other)
  Sender: PFIZER
  Company Number: CN-MLMSERVICE-20241022-PI230939-00270-2

PATIENT
  Age: 5 Year
  Sex: Female

DRUGS (4)
  1. METHYLPREDNISOLONE SODIUM SUCCINATE [Suspect]
     Active Substance: METHYLPREDNISOLONE SODIUM SUCCINATE
     Indication: Pneumonia mycoplasmal
     Dosage: 6 MG/KG, 1X/DAY
     Route: 042
     Dates: start: 2022
  2. METHYLPREDNISOLONE SODIUM SUCCINATE [Suspect]
     Active Substance: METHYLPREDNISOLONE SODIUM SUCCINATE
     Indication: Pneumonia necrotising
     Dosage: 2 MG/KG, 1X/DAY
     Route: 042
     Dates: start: 202207
  3. AZITHROMYCIN [Concomitant]
     Active Substance: AZITHROMYCIN
     Indication: Pneumonia mycoplasmal
     Dosage: UNK
     Route: 042
     Dates: start: 2022
  4. AZITHROMYCIN [Concomitant]
     Active Substance: AZITHROMYCIN
     Indication: Pneumonia necrotising

REACTIONS (2)
  - Pyopneumothorax [Recovering/Resolving]
  - Alpha haemolytic streptococcal infection [Recovering/Resolving]

NARRATIVE: CASE EVENT DATE: 20220701
